FAERS Safety Report 7428889-2 (Version None)
Quarter: 2011Q2

REPORT INFORMATION
  Report Type: 
  Country: None (occurrence: None)
  Receive Date: 20110412
  Receipt Date: 20110322
  Transmission Date: 20111010
  Serious: Yes (Other)
  Sender: FDA-Public Use
  Company Number: 014903

PATIENT
  Age: 85 Year
  Sex: Male

DRUGS (3)
  1. MACUGEN [Suspect]
     Indication: AGE-RELATED MACULAR DEGENERATION
     Dosage: 0.3MG, INTRAOCULAR
     Route: 031
     Dates: start: 20110301
  2. GATIFLOXACIN [Concomitant]
  3. ISODINE (POVIDONE-IODINE) [Concomitant]

REACTIONS (4)
  - CONJUNCTIVAL HYPERAEMIA [None]
  - EYE PAIN [None]
  - CORNEAL OEDEMA [None]
  - EYE DISCHARGE [None]
